FAERS Safety Report 7516219-7 (Version None)
Quarter: 2011Q2

REPORT INFORMATION
  Report Type: 
  Country: None (occurrence: None)
  Receive Date: 20110601
  Receipt Date: 20110525
  Transmission Date: 20111010
  Serious: Yes (Other)
  Sender: FDA-Public Use
  Company Number: CO-PFIZER INC-2011115308

PATIENT
  Age: 2 Year

DRUGS (3)
  1. CHILDREN'S ADVIL [Suspect]
     Indication: RHINOVIRUS INFECTION
     Dosage: 10 MG, SINGLE
     Dates: start: 20101101, end: 20101101
  2. CHILDREN'S ADVIL [Suspect]
     Indication: PYREXIA
  3. DOLEX [Concomitant]
     Dosage: UNK
     Dates: start: 20101101

REACTIONS (3)
  - HYPOTENSION [None]
  - HAEMOLYTIC ANAEMIA [None]
  - HYPOTHERMIA [None]
